FAERS Safety Report 4429437-1 (Version None)
Quarter: 2004Q3

REPORT INFORMATION
  Report Type: 
  Country: None (occurrence: None)
  Receive Date: 20040816
  Receipt Date: 20040804
  Transmission Date: 20050211
  Serious: Yes (Hospitalization)
  Sender: FDA-Public Use
  Company Number: 2004227257GB

PATIENT
  Age: 42 Year
  Sex: Female

DRUGS (6)
  1. DICLOFENAC SODIUM [Suspect]
     Dosage: 50 MG, TID
  2. DELTA-CORTEF [Suspect]
     Dosage: 7.5 MG , QD,  ORAL
     Route: 048
  3. TREO (ACETYLSALICYLIC ACID, CAFFEINE) TABLET, EFFERVESCENT [Suspect]
     Dosage: 2 DF, TID, ORAL
     Route: 048
  4. DUOROL (PARACETAMOL) TABLET [Suspect]
     Dosage: 2 DF, TID, ORAL
     Route: 048
  5. PHOSTARAC (ALENDRONATE SODIUM) TABLET [Suspect]
     Dosage: 5 MG, QD, ORAL
     Route: 048
  6. MEFENAMIC ACID [Suspect]
     Dosage: 500 MG, TID

REACTIONS (3)
  - HAEMOGLOBIN DECREASED [None]
  - PAIN [None]
  - UPPER GASTROINTESTINAL HAEMORRHAGE [None]
